FAERS Safety Report 14915091 (Version 2)
Quarter: 2018Q2

REPORT INFORMATION
  Report Type: Spontaneous
  Country: US (occurrence: US)
  Receive Date: 20180518
  Receipt Date: 20180629
  Transmission Date: 20180711
  Serious: Yes (Other)
  Sender: FDA-Public Use
  Company Number: US-FRESENIUS KABI-FK201805833

PATIENT
  Age: 9 Year
  Sex: Female
  Weight: 19.1 kg

DRUGS (1)
  1. ETOPOSIDE INJECTION, USP [Suspect]
     Active Substance: ETOPOSIDE
     Indication: CHEMOTHERAPY
     Route: 042
     Dates: start: 20180502, end: 20180502

REACTIONS (2)
  - Throat irritation [Recovered/Resolved]
  - Dyspnoea [Recovered/Resolved]

NARRATIVE: CASE EVENT DATE: 20180502
